FAERS Safety Report 21520967 (Version 1)
Quarter: 2022Q4

REPORT INFORMATION
  Report Type: Spontaneous
  Country: US (occurrence: US)
  Receive Date: 20221028
  Receipt Date: 20221028
  Transmission Date: 20230113
  Serious: Yes (Other)
  Sender: FDA-Public Use
  Company Number: US-SA-2022SA435061

PATIENT
  Age: 44 Year
  Sex: Male

DRUGS (1)
  1. FABRAZYME [Suspect]
     Active Substance: AGALSIDASE BETA
     Indication: Fabry^s disease
     Dosage: 90 MG, QOW
     Route: 042
     Dates: start: 2008

REACTIONS (8)
  - Deafness [Unknown]
  - Transient ischaemic attack [Unknown]
  - Corneal opacity [Unknown]
  - Burning sensation [Unknown]
  - Mitral valve replacement [Unknown]
  - Renal transplant [Unknown]
  - Left ventricular hypertrophy [Unknown]
  - Cardiovascular disorder [Unknown]

NARRATIVE: CASE EVENT DATE: 20090101
